FAERS Safety Report 8912497 (Version 1)
Quarter: 2012Q4

REPORT INFORMATION
  Report Type: 
  Country: ES (occurrence: ES)
  Receive Date: 20121116
  Receipt Date: 20121116
  Transmission Date: 20130627
  Serious: Yes (Hospitalization, Other)
  Sender: FDA-Public Use
  Company Number: ES-PFIZER INC-2012285505

PATIENT
  Age: 80 Year
  Sex: Male

DRUGS (9)
  1. PHENYTOIN SODIUM [Suspect]
     Indication: EPILEPSY
     Dosage: 100 mg, UNK
  2. DABIGATRAN [Interacting]
     Indication: ATRIAL FIBRILLATION
     Dosage: 110 mg, 2x/day
     Route: 048
  3. DABIGATRAN [Interacting]
     Dosage: 150 mg, 2x/day
  4. AMIODARONE [Interacting]
     Indication: ATRIAL FIBRILLATION
     Dosage: 200 mg/24 h
  5. CARBAMAZEPINE [Interacting]
     Indication: EPILEPSY
     Dosage: 400 mg, UNK
  6. PHENOBARBITAL [Interacting]
     Indication: EPILEPSY
     Dosage: 0.1 mg, UNK
  7. TIOTROPIUM BROMIDE [Concomitant]
     Indication: CHRONIC OBSTRUCTIVE PULMONARY DISEASE
  8. TAMSULOSIN [Concomitant]
     Indication: BENIGN PROSTATIC HYPERPLASIA
     Dosage: 0.4mg, UNK
  9. ATORVASTATIN [Concomitant]
     Indication: HYPERLIPIDEMIA
     Dosage: 40mg, UNK

REACTIONS (4)
  - Drug interaction [Unknown]
  - Embolic stroke [Unknown]
  - Dizziness [Unknown]
  - Gait disturbance [Unknown]
